FAERS Safety Report 7495764-7 (Version None)
Quarter: 2011Q2

REPORT INFORMATION
  Report Type: 
  Country: None (occurrence: None)
  Receive Date: 20110523
  Receipt Date: 20110509
  Transmission Date: 20111010
  Serious: Yes (Hospitalization, Other)
  Sender: FDA-Public Use
  Company Number: US-ELI_LILLY_AND_COMPANY-US201105003699

PATIENT
  Age: 54 Year
  Sex: Male

DRUGS (6)
  1. CLONAZEPAM [Concomitant]
  2. MIRTAZAPINE [Concomitant]
  3. VENLAFAXINE [Concomitant]
  4. OLANZAPINE [Suspect]
     Indication: SCHIZOAFFECTIVE DISORDER
     Dosage: 20 MG, QD
  5. FENOFIBRATE [Concomitant]
     Indication: HYPERTRIGLYCERIDAEMIA
  6. ZIPRASIDONE HYDROCHLORIDE [Concomitant]

REACTIONS (3)
  - BILE DUCT STENOSIS [None]
  - JAUNDICE [None]
  - PANCREATITIS [None]
